FAERS Safety Report 7098158-1 (Version None)
Quarter: 2010Q4

REPORT INFORMATION
  Report Type: 
  Country: None (occurrence: None)
  Receive Date: 20101104
  Receipt Date: 20101028
  Transmission Date: 20110411
  Serious: Yes (Death, Other)
  Sender: FDA-Public Use
  Company Number: 2010JP006279

PATIENT
  Age: 22 Year
  Sex: Male

DRUGS (4)
  1. PROGRAF [Suspect]
     Indication: LUNG TRANSPLANT
  2. PREDNISOLONE [Concomitant]
  3. METHOTREXATE [Concomitant]
  4. RITUXIMAB (RITUXIMAB) [Concomitant]

REACTIONS (10)
  - DIFFUSE LARGE B-CELL LYMPHOMA [None]
  - FLATULENCE [None]
  - GASTROINTESTINAL PERFORATION [None]
  - IDIOPATHIC THROMBOCYTOPENIC PURPURA [None]
  - JEJUNAL PERFORATION [None]
  - LYMPHOMA [None]
  - OCCULT BLOOD POSITIVE [None]
  - PNEUMONIA [None]
  - RESPIRATORY FAILURE [None]
  - TUMOUR HAEMORRHAGE [None]
